FAERS Safety Report 16700310 (Version 3)
Quarter: 2019Q3

REPORT INFORMATION
  Report Type: Spontaneous
  Country: US (occurrence: US)
  Receive Date: 20190814
  Receipt Date: 20190927
  Transmission Date: 20191004
  Serious: No
  Sender: FDA-Public Use
  Company Number: US-009507513-1908USA005248

PATIENT
  Age: 25 Year
  Sex: Female
  Weight: 58.5 kg

DRUGS (1)
  1. NEXPLANON [Suspect]
     Active Substance: ETONOGESTREL
     Indication: CONTRACEPTION
     Dosage: 1 IMPLANT, LEFT ARM
     Route: 059
     Dates: start: 20190724

REACTIONS (3)
  - Device difficult to use [Unknown]
  - Complication of device insertion [Unknown]
  - No adverse event [Unknown]

NARRATIVE: CASE EVENT DATE: 20190724
